FAERS Safety Report 6330262-5 (Version None)
Quarter: 2009Q3

REPORT INFORMATION
  Report Type: 
  Country: None (occurrence: None)
  Receive Date: 20090827
  Receipt Date: 20090604
  Transmission Date: 20100115
  Serious: No
  Sender: FDA-Public Use
  Company Number: US-KINGPHARMUSA00001-K200900684

PATIENT
  Sex: Male
  Weight: 99.773 kg

DRUGS (3)
  1. FLECTOR [Suspect]
     Indication: ARTHRALGIA
     Dosage: 1 PATCH, Q 12 HOURS
     Route: 061
     Dates: start: 20090520
  2. ZYRTEC [Concomitant]
     Dosage: UNK
  3. COZAAR [Concomitant]
     Dosage: UNK

REACTIONS (3)
  - ASTHMA [None]
  - DYSURIA [None]
  - HAEMATOCHEZIA [None]
